FAERS Safety Report 6418935-7 (Version None)
Quarter: 2009Q4

REPORT INFORMATION
  Report Type: 
  Country: None (occurrence: None)
  Receive Date: 20091028
  Receipt Date: 20091028
  Transmission Date: 20100525
  Serious: Yes (Other)
  Sender: FDA-Public Use
  Company Number: None

PATIENT
  Age: 70 Year
  Sex: Male
  Weight: 79.4 kg

DRUGS (1)
  1. PAROXETINE HCL [Suspect]
     Indication: DEPRESSION
     Dosage: 20 MG EVERY DAY PO
     Route: 048
     Dates: start: 20090930, end: 20091004

REACTIONS (8)
  - ANXIETY [None]
  - CLOSTRIDIAL INFECTION [None]
  - CONFUSIONAL STATE [None]
  - DEHYDRATION [None]
  - DIARRHOEA [None]
  - GALLBLADDER DISORDER [None]
  - IRRITABLE BOWEL SYNDROME [None]
  - POST GASTRIC SURGERY SYNDROME [None]
